FAERS Safety Report 4983608-4 (Version None)
Quarter: 2006Q2

REPORT INFORMATION
  Report Type: 
  Country: None (occurrence: None)
  Receive Date: 20060425
  Receipt Date: 20060425
  Transmission Date: 20061013
  Serious: Yes (Other)
  Sender: FDA-Public Use
  Company Number: None

PATIENT
  Age: 88 Year
  Sex: Female
  Weight: 78.5 kg

DRUGS (9)
  1. LOVASTATIN [Suspect]
  2. SYNTHROID [Concomitant]
  3. HYDR0CHLOROTHIAZINE [Concomitant]
  4. ENALAPRIL MALEATE [Concomitant]
  5. CYANOCOBALAMIN [Concomitant]
  6. OMEPRAZOLE [Concomitant]
  7. METOPROLOL SUCCINATE [Concomitant]
  8. POTASSIUM CHLORIDE [Concomitant]
  9. PSYLLIUM SF [Concomitant]

REACTIONS (1)
  - URTICARIA [None]
